FAERS Safety Report 8832162 (Version 2)
Quarter: 2013Q2

REPORT INFORMATION
  Report Type: Report from Study
  Country: BR (occurrence: BR)
  Receive Date: 20121009
  Receipt Date: 20130517
  Transmission Date: 20140414
  Serious: Yes (Death, Hospitalization, Other)
  Sender: FDA-Public Use
  Company Number: BR-ROCHE-736825

PATIENT
  Age: 52 Year
  Sex: Female
  Weight: 84 kg

DRUGS (14)
  1. RITUXIMAB [Suspect]
     Indication: RHEUMATOID ARTHRITIS
     Dosage: FORM: INFUSION, RECEIVED TWO INFUSIONS
     Route: 042
     Dates: start: 20100901, end: 20100924
  2. MELOXICAM [Concomitant]
     Route: 065
  3. TRIAMCINOLONA [Concomitant]
     Dosage: DRUG NAME WAS REPORTED AS ^TRIANCINOLONA^.
     Route: 065
  4. TRAMADOL [Concomitant]
     Route: 065
  5. ATENOLOL [Concomitant]
     Route: 065
  6. CLORTALIDONA [Concomitant]
  7. MAPROTILINA [Concomitant]
     Route: 065
  8. PROFENID [Concomitant]
     Route: 065
  9. BROMAZEPAM [Concomitant]
     Route: 065
  10. PAROXETINE [Concomitant]
     Route: 065
  11. CHLORTHALIDONE [Concomitant]
     Route: 065
  12. CORTISONE [Concomitant]
     Indication: PREMEDICATION
  13. FAMOTIDINA [Concomitant]
     Route: 065
  14. OMEPRAZOLE [Concomitant]
     Indication: GASTRITIS

REACTIONS (18)
  - Cardio-respiratory arrest [Fatal]
  - Dysarthria [Recovered/Resolved]
  - Gait disturbance [Not Recovered/Not Resolved]
  - Nodule [Recovering/Resolving]
  - Arthralgia [Not Recovered/Not Resolved]
  - Spinal pain [Not Recovered/Not Resolved]
  - Upper limb fracture [Not Recovered/Not Resolved]
  - Therapeutic response decreased [Not Recovered/Not Resolved]
  - Local swelling [Recovering/Resolving]
  - Abdominal distension [Recovering/Resolving]
  - Weight increased [Recovering/Resolving]
  - Joint swelling [Not Recovered/Not Resolved]
  - Upper limb fracture [Not Recovered/Not Resolved]
  - Muscle atrophy [Recovering/Resolving]
  - Pain [Not Recovered/Not Resolved]
  - Limb deformity [Unknown]
  - Unevaluable event [Unknown]
  - Shock [Unknown]
